FAERS Safety Report 11582378 (Version 1)
Quarter: 2015Q3

REPORT INFORMATION
  Report Type: Spontaneous
  Country: US (occurrence: None)
  Receive Date: 20150930
  Receipt Date: 20150930
  Transmission Date: 20151125
  Serious: Yes (Life-Threatening, Hospitalization, Disabling)
  Sender: FDA-Public Use
  Company Number: None

PATIENT
  Age: 17 Year
  Sex: Female
  Weight: 47.17 kg

DRUGS (10)
  1. HAIR-SKIN-NAILS [Concomitant]
  2. BEYAZ [Suspect]
     Active Substance: DROSPIRENONE\ETHINYL ESTRADIOL\LEVOMEFOLATE CALCIUM
     Indication: MENSTRUATION IRREGULAR
     Dosage: TAKEN BY MOUTH
     Dates: start: 20150419, end: 20150704
  3. CALCIUM [Concomitant]
     Active Substance: CALCIUM
  4. CRANBERRY. [Concomitant]
     Active Substance: CRANBERRY
  5. CHEWABLE GUMMIES [Concomitant]
  6. BEYAZ [Suspect]
     Active Substance: DROSPIRENONE\ETHINYL ESTRADIOL\LEVOMEFOLATE CALCIUM
     Indication: MENORRHAGIA
     Dosage: TAKEN BY MOUTH
     Dates: start: 20150419, end: 20150704
  7. ENOXAPARIN [Concomitant]
     Active Substance: ENOXAPARIN
  8. OMEGA 3 [Concomitant]
     Active Substance: OMEGA-3 FATTY ACIDS
  9. NORETHINDRONE. [Concomitant]
     Active Substance: NORETHINDRONE
  10. MULTIVITS [Concomitant]

REACTIONS (2)
  - Deep vein thrombosis [None]
  - May-Thurner syndrome [None]

NARRATIVE: CASE EVENT DATE: 20150705
